FAERS Safety Report 6971424-3 (Version None)
Quarter: 2010Q3

REPORT INFORMATION
  Report Type: 
  Country: None (occurrence: None)
  Receive Date: 20100908
  Receipt Date: 20100907
  Transmission Date: 20110219
  Serious: Yes (Hospitalization)
  Sender: FDA-Public Use
  Company Number: US-CEPHALON-2010004749

PATIENT
  Age: 24 Year
  Sex: Male

DRUGS (2)
  1. NUVIGIL [Suspect]
     Route: 048
     Dates: start: 20100701, end: 20100905
  2. SUBUTEX [Concomitant]
     Indication: DRUG ABUSE
     Dates: start: 20100101, end: 20100905

REACTIONS (2)
  - HEPATITIS ACUTE [None]
  - INTENTIONAL DRUG MISUSE [None]
